FAERS Safety Report 5751252-7 (Version None)
Quarter: 2008Q2

REPORT INFORMATION
  Report Type: 
  Country: None (occurrence: None)
  Receive Date: 20080528
  Receipt Date: 20071129
  Transmission Date: 20081010
  Serious: No
  Sender: FDA-Public Use
  Company Number: US-BOEHRINGER INGELHEIM GMBH, GERMANY-2006-BP-14508BP

PATIENT
  Sex: Female

DRUGS (15)
  1. MIRAPEX [Suspect]
     Indication: PARKINSON'S DISEASE
     Route: 048
     Dates: start: 20000901, end: 20031101
  2. TENORMIN [Concomitant]
     Indication: HYPERTENSION
  3. CELEBREX [Concomitant]
  4. FOSAMAX [Concomitant]
  5. CALCIUM [Concomitant]
  6. ATENOLOL [Concomitant]
  7. NAPROXEN [Concomitant]
  8. HYDROCHLOROTHIAZIDE [Concomitant]
  9. STALEVO 100 [Concomitant]
  10. ZOLOFT [Concomitant]
  11. MOBIC [Concomitant]
     Indication: PAIN
  12. ZOCOR [Concomitant]
  13. LIPITOR [Concomitant]
  14. GLUCOSAMINE [Concomitant]
  15. PREMPRO [Concomitant]

REACTIONS (3)
  - DEPRESSION [None]
  - OBSESSIVE-COMPULSIVE DISORDER [None]
  - PATHOLOGICAL GAMBLING [None]
